FAERS Safety Report 19609786 (Version 7)
Quarter: 2022Q2

REPORT INFORMATION
  Report Type: Spontaneous
  Country: CA (occurrence: None)
  Receive Date: 20210726
  Receipt Date: 20220401
  Transmission Date: 20220720
  Serious: Yes (Other)
  Sender: FDA-Public Use
  Company Number: CA-PFIZER INC-2021665451

PATIENT
  Age: 22 Year
  Sex: Male
  Weight: 62 kg

DRUGS (11)
  1. METHOTREXATE [Suspect]
     Active Substance: METHOTREXATE
     Indication: Product used for unknown indication
     Route: 065
     Dates: start: 20210323, end: 2021
  2. INFLECTRA [Suspect]
     Active Substance: INFLIXIMAB-DYYB
     Indication: Crohn^s disease
     Dosage: CYCLIC (5MG/KG AT WEEK 0,2,6 THEN EVERY 8 WEEKS)
     Route: 042
     Dates: start: 20210602
  3. INFLECTRA [Suspect]
     Active Substance: INFLIXIMAB-DYYB
     Dosage: CYCLIC (5MG/KG AT WEEK 0,2,6 THEN EVERY 8 WEEKS)
     Route: 042
     Dates: start: 20210616
  4. INFLECTRA [Suspect]
     Active Substance: INFLIXIMAB-DYYB
     Dosage: CYCLIC (5MG/KG AT WEEK 0,2,6 THEN EVERY 8 WEEKS)
     Route: 042
     Dates: start: 20210714
  5. INFLECTRA [Suspect]
     Active Substance: INFLIXIMAB-DYYB
     Dosage: CYCLIC (5MG/KG AT WEEK 0,2,6 THEN EVERY 8 WEEKS)
     Route: 042
     Dates: start: 20210908
  6. INFLECTRA [Suspect]
     Active Substance: INFLIXIMAB-DYYB
     Dosage: CYCLIC (5MG/KG AT WEEK 0,2,6 THEN EVERY 8 WEEKS)
     Route: 042
     Dates: start: 20210908
  7. INFLECTRA [Suspect]
     Active Substance: INFLIXIMAB-DYYB
     Route: 042
     Dates: start: 20211103
  8. INFLECTRA [Suspect]
     Active Substance: INFLIXIMAB-DYYB
     Route: 042
     Dates: start: 20211229
  9. INFLECTRA [Suspect]
     Active Substance: INFLIXIMAB-DYYB
     Route: 042
     Dates: start: 20220223
  10. FOLIC ACID [Concomitant]
     Active Substance: FOLIC ACID
     Route: 065
  11. VITAMIN D NOS [Concomitant]
     Active Substance: VITAMIN D NOS
     Route: 065

REACTIONS (12)
  - Anal abscess [Unknown]
  - Impaired healing [Unknown]
  - Wound [Unknown]
  - Lymphadenitis [Unknown]
  - Nodule [Recovered/Resolved]
  - Scratch [Unknown]
  - Scab [Unknown]
  - Fatigue [Not Recovered/Not Resolved]
  - Decreased appetite [Not Recovered/Not Resolved]
  - Asthenia [Not Recovered/Not Resolved]
  - Constipation [Not Recovered/Not Resolved]
  - Anal fissure [Not Recovered/Not Resolved]

NARRATIVE: CASE EVENT DATE: 20210101
